FAERS Safety Report 25999808 (Version 1)
Quarter: 2025Q4

REPORT INFORMATION
  Report Type: Spontaneous
  Country: KR (occurrence: KR)
  Receive Date: 20251105
  Receipt Date: 20251105
  Transmission Date: 20260117
  Serious: Yes (Hospitalization, Other)
  Sender: Kenvue
  Company Number: KR-KENVUE-20251013263

PATIENT

DRUGS (1)
  1. TYLENOL 8HR [Suspect]
     Active Substance: ACETAMINOPHEN
     Indication: Evidence based treatment
     Dosage: 1 DOSAGE FORM, 0.33 TIME A DAY
     Route: 065
     Dates: start: 20240226, end: 20240226

REACTIONS (1)
  - Dermatitis bullous [Recovering/Resolving]

NARRATIVE: CASE EVENT DATE: 20240307
